FAERS Safety Report 24055191 (Version 2)
Quarter: 2025Q1

REPORT INFORMATION
  Report Type: Spontaneous
  Country: US (occurrence: US)
  Receive Date: 20240705
  Receipt Date: 20250321
  Transmission Date: 20250408
  Serious: No
  Sender: EISAI
  Company Number: US-Eisai-EC-2024-167772

PATIENT
  Age: 60 Year
  Sex: Female

DRUGS (1)
  1. LEQEMBI [Suspect]
     Active Substance: LECANEMAB-IRMB
     Indication: Dementia Alzheimer^s type
     Dates: start: 202403

REACTIONS (3)
  - Headache [Unknown]
  - Dementia Alzheimer^s type [Unknown]
  - Delirium [Unknown]

NARRATIVE: CASE EVENT DATE: 20240101
